FAERS Safety Report 23032268 (Version 2)
Quarter: 2023Q4

REPORT INFORMATION
  Report Type: Report from Study
  Country: US (occurrence: US)
  Receive Date: 20231005
  Receipt Date: 20231016
  Transmission Date: 20240109
  Serious: Yes (Other)
  Sender: FDA-Public Use
  Company Number: US-TEVA-2023-US-2931523

PATIENT
  Sex: Male

DRUGS (4)
  1. ALPROSTADIL [Suspect]
     Active Substance: ALPROSTADIL
     Indication: Erectile dysfunction
     Route: 017
  2. ATROPINE [Suspect]
     Active Substance: ATROPINE
     Indication: Erectile dysfunction
     Route: 017
  3. PAPAVERINE [Suspect]
     Active Substance: PAPAVERINE
     Indication: Erectile dysfunction
     Route: 017
  4. PHENTOLAMINE [Suspect]
     Active Substance: PHENTOLAMINE
     Indication: Erectile dysfunction
     Route: 017

REACTIONS (2)
  - Peyronie^s disease [Unknown]
  - Sexual dysfunction [Unknown]
